FAERS Safety Report 7090163-4 (Version None)
Quarter: 2010Q4

REPORT INFORMATION
  Report Type: 
  Country: None (occurrence: None)
  Receive Date: 20101105
  Receipt Date: 20101105
  Transmission Date: 20110411
  Serious: Yes (Life-Threatening, Hospitalization, Other)
  Sender: FDA-Public Use
  Company Number: None

PATIENT
  Age: 12 Year
  Sex: Female
  Weight: 33.5 kg

DRUGS (3)
  1. HUMIRA [Suspect]
     Indication: CROHN'S DISEASE
     Dosage: 80 MG Q2WKS SUBCUTANEOUS
     Route: 058
     Dates: start: 20070905
  2. METHOTREXATE [Suspect]
     Indication: CROHN'S DISEASE
     Dosage: 2.5 MG WEEKLY P.O.
     Route: 048
     Dates: start: 20080108
  3. AZATHIOPRINE [Concomitant]

REACTIONS (1)
  - B-CELL LYMPHOMA [None]
